FAERS Safety Report 19809327 (Version 2)
Quarter: 2022Q1

REPORT INFORMATION
  Report Type: Spontaneous
  Country: US (occurrence: US)
  Receive Date: 20210909
  Receipt Date: 20220208
  Transmission Date: 20220423
  Serious: Yes (Other)
  Sender: FDA-Public Use
  Company Number: US-GILEAD-2021-0547292

PATIENT
  Age: 44 Year
  Sex: Male
  Weight: 80.272 kg

DRUGS (31)
  1. VIREAD [Suspect]
     Active Substance: TENOFOVIR DISOPROXIL FUMARATE
     Indication: HIV infection
     Dosage: UNK
     Route: 048
     Dates: start: 2001, end: 2004
  2. ATRIPLA [Suspect]
     Active Substance: EFAVIRENZ\EMTRICITABINE\TENOFOVIR DISOPROXIL FUMARATE
     Indication: HIV infection
     Dosage: UNK
     Route: 048
     Dates: start: 2001
  3. TRUVADA [Suspect]
     Active Substance: EMTRICITABINE\TENOFOVIR DISOPROXIL FUMARATE
     Indication: HIV infection
     Dosage: UNK
     Route: 048
     Dates: start: 2001
  4. TRUVADA [Suspect]
     Active Substance: EMTRICITABINE\TENOFOVIR DISOPROXIL FUMARATE
     Dosage: UNK
     Route: 048
     Dates: start: 2004, end: 2020
  5. COMBIVIR [Concomitant]
     Active Substance: LAMIVUDINE\ZIDOVUDINE
  6. DESCOVY [Concomitant]
     Active Substance: EMTRICITABINE\TENOFOVIR ALAFENAMIDE FUMARATE
  7. EPIVIR [Concomitant]
     Active Substance: LAMIVUDINE
  8. FUZEON [Concomitant]
     Active Substance: ENFUVIRTIDE
  9. GENVOYA [Concomitant]
     Active Substance: COBICISTAT\ELVITEGRAVIR\EMTRICITABINE\TENOFOVIR ALAFENAMIDE FUMARATE
  10. ISENTRESS [Concomitant]
     Active Substance: RALTEGRAVIR POTASSIUM
  11. LEXIVA [Concomitant]
     Active Substance: FOSAMPRENAVIR CALCIUM
  12. RETROVIR [Concomitant]
     Active Substance: ZIDOVUDINE
  13. REYATAZ [Concomitant]
     Active Substance: ATAZANAVIR SULFATE
  14. SUSTIVA [Concomitant]
     Active Substance: EFAVIRENZ
  15. VIRACEPT [Concomitant]
     Active Substance: NELFINAVIR MESYLATE
  16. ZERIT [Concomitant]
     Active Substance: STAVUDINE
  17. LIPITOR [Concomitant]
     Active Substance: ATORVASTATIN CALCIUM
  18. DRONABINOL [Concomitant]
     Active Substance: DRONABINOL
  19. LIBRAX [Concomitant]
     Active Substance: CHLORDIAZEPOXIDE HYDROCHLORIDE\CLIDINIUM BROMIDE
  20. GABAPENTIN [Concomitant]
     Active Substance: GABAPENTIN
  21. PHENERGAN [Concomitant]
     Active Substance: PROMETHAZINE HYDROCHLORIDE
  22. JANUVIA [Concomitant]
     Active Substance: SITAGLIPTIN PHOSPHATE
  23. PROAIR HFA [Concomitant]
     Active Substance: ALBUTEROL SULFATE
  24. ALBUTEROL SULFATE [Concomitant]
     Active Substance: ALBUTEROL SULFATE
  25. FENOFIBRATE [Concomitant]
     Active Substance: FENOFIBRATE
  26. TAMSULOSIN [Concomitant]
     Active Substance: TAMSULOSIN
  27. TRESIBA [Concomitant]
     Active Substance: INSULIN DEGLUDEC
  28. INSULIN GLARGINE [Concomitant]
     Active Substance: INSULIN GLARGINE
  29. LYRICA [Concomitant]
     Active Substance: PREGABALIN
  30. ALLOPURINOL [Concomitant]
     Active Substance: ALLOPURINOL
  31. XANAX [Concomitant]
     Active Substance: ALPRAZOLAM

REACTIONS (10)
  - Osteoporosis [Not Recovered/Not Resolved]
  - Bone density decreased [Unknown]
  - Emotional distress [Not Recovered/Not Resolved]
  - Anxiety [Not Recovered/Not Resolved]
  - Anhedonia [Not Recovered/Not Resolved]
  - Bone pain [Unknown]
  - Bone pain [Unknown]
  - Arthralgia [Unknown]
  - Pain [Not Recovered/Not Resolved]
  - Depression [Not Recovered/Not Resolved]

NARRATIVE: CASE EVENT DATE: 20100301
